FAERS Safety Report 11500708 (Version 1)
Quarter: 2015Q3

REPORT INFORMATION
  Report Type: Spontaneous
  Country: PL (occurrence: PL)
  Receive Date: 20150914
  Receipt Date: 20150914
  Transmission Date: 20151125
  Serious: Yes (Other)
  Sender: FDA-Public Use
  Company Number: PL-TEVA-591656ISR

PATIENT
  Age: 72 Year
  Sex: Male
  Weight: 63 kg

DRUGS (4)
  1. 5-FLUOROURACIL-EBEWE [Suspect]
     Active Substance: FLUOROURACIL
     Indication: COLON CANCER
     Dosage: DOSE:1010; UNIT NOT SPECIFIED
     Route: 041
     Dates: start: 20150505, end: 20150507
  2. 5-FLUOROURACIL-EBEWE [Suspect]
     Active Substance: FLUOROURACIL
     Indication: COLON CANCER
     Dosage: DOSE:673; UNIT NOT SPECIFIED
     Route: 042
     Dates: start: 20150505, end: 20150507
  3. IRINOTECAN [Suspect]
     Active Substance: IRINOTECAN
     Indication: COLON CANCER
     Dosage: DOSE:300; DOSE UNIT:NOT SPECIFIED
     Route: 042
     Dates: start: 20150505, end: 20150507
  4. LEUCOVORIN CA TEVA [Suspect]
     Active Substance: LEUCOVORIN CALCIUM
     Indication: COLON CANCER
     Dosage: DOSE:336; DOSE UNIT: NOT SPECIFIED
     Route: 042
     Dates: start: 20150505, end: 20150507

REACTIONS (1)
  - Neutropenia [Unknown]

NARRATIVE: CASE EVENT DATE: 20150519
